FAERS Safety Report 17927975 (Version 2)
Quarter: 2020Q3

REPORT INFORMATION
  Report Type: Spontaneous
  Country: FR (occurrence: FR)
  Receive Date: 20200623
  Receipt Date: 20200702
  Transmission Date: 20201103
  Serious: Yes (Other)
  Sender: FDA-Public Use
  Company Number: FR-ROCHE-2628969

PATIENT
  Sex: Female

DRUGS (1)
  1. XOLAIR [Suspect]
     Active Substance: OMALIZUMAB
     Indication: MECHANICAL URTICARIA
     Dosage: 2 INJECTION OF OMALIZUMAB
     Route: 058
     Dates: start: 202001

REACTIONS (7)
  - Muscle disorder [Unknown]
  - Product use in unapproved indication [Unknown]
  - Off label use [Unknown]
  - Tendonitis [Unknown]
  - Muscle rupture [Unknown]
  - General physical health deterioration [Unknown]
  - Muscle fatigue [Unknown]
